FAERS Safety Report 8544191-X (Version None)
Quarter: 2012Q3

REPORT INFORMATION
  Report Type: 
  Country: None (occurrence: None)
  Receive Date: 20120718
  Receipt Date: 20120718
  Transmission Date: 20120928
  Serious: Yes (Other)
  Sender: FDA-Public Use
  Company Number: None

PATIENT
  Age: 34 Year
  Sex: Female
  Weight: 65.9 kg

DRUGS (1)
  1. INTROVALE [Suspect]
     Indication: CONTRACEPTION
     Dosage: 1 PILL DAILY ORAL
     Route: 048
     Dates: start: 20120201, end: 20120501

REACTIONS (3)
  - MATERNAL EXPOSURE DURING PREGNANCY [None]
  - PRODUCT BLISTER PACKAGING ISSUE [None]
  - PREGNANCY ON ORAL CONTRACEPTIVE [None]
